FAERS Safety Report 14956268 (Version 2)
Quarter: 2019Q2

REPORT INFORMATION
  Report Type: Spontaneous
  Country: US (occurrence: US)
  Receive Date: 20180531
  Receipt Date: 20190524
  Transmission Date: 20190711
  Serious: No
  Sender: FDA-Public Use
  Company Number: US-NOVEN PHARMACEUTICALS, INC.-US2017000622

PATIENT

DRUGS (4)
  1. DAYTRANA [Suspect]
     Active Substance: METHYLPHENIDATE
     Dosage: 15 MG, UNK
     Route: 062
     Dates: end: 2018
  2. DAYTRANA [Suspect]
     Active Substance: METHYLPHENIDATE
     Indication: ATTENTION DEFICIT/HYPERACTIVITY DISORDER
     Dosage: 10 MG, UNKNOWN
     Route: 062
     Dates: start: 201609
  3. DAYTRANA [Suspect]
     Active Substance: METHYLPHENIDATE
     Dosage: USED ONE AND HALF PATCH OF 15 MG, UNK
     Route: 062
     Dates: start: 2018, end: 201809
  4. DAYTRANA [Suspect]
     Active Substance: METHYLPHENIDATE
     Dosage: UNK, UNKNOWN
     Route: 062

REACTIONS (10)
  - Therapy cessation [Not Recovered/Not Resolved]
  - Product administration error [Recovered/Resolved]
  - Off label use [Recovered/Resolved]
  - Product quality issue [Recovered/Resolved]
  - Product adhesion issue [Recovered/Resolved]
  - Wrong technique in product usage process [Recovered/Resolved]
  - Drug ineffective [Recovered/Resolved]
  - Abnormal behaviour [Unknown]
  - Psychomotor hyperactivity [Unknown]
  - Mood swings [Unknown]

NARRATIVE: CASE EVENT DATE: 2017
